FAERS Safety Report 5311138-9 (Version None)
Quarter: 2007Q2

REPORT INFORMATION
  Report Type: 
  Country: None (occurrence: None)
  Receive Date: 20070426
  Receipt Date: 20070426
  Transmission Date: 20071010
  Serious: Yes (Other)
  Sender: FDA-Public Use
  Company Number: None

PATIENT
  Age: 40 Year
  Sex: Female

DRUGS (4)
  1. BUPROPION HCL [Suspect]
     Indication: ANXIETY
     Dosage: 150 MG PO QAM
     Route: 048
     Dates: start: 20070201, end: 20070401
  2. BUPROPION HCL [Suspect]
     Indication: MAJOR DEPRESSION
     Dosage: 150 MG PO QAM
     Route: 048
     Dates: start: 20070201, end: 20070401
  3. LEXAPRO [Concomitant]
  4. KLONOPIN [Concomitant]

REACTIONS (7)
  - AFFECTIVE DISORDER [None]
  - APATHY [None]
  - DISSOCIATION [None]
  - FEELING ABNORMAL [None]
  - POOR QUALITY SLEEP [None]
  - SUICIDAL IDEATION [None]
  - THERAPEUTIC RESPONSE UNEXPECTED WITH DRUG SUBSTITUTION [None]
